FAERS Safety Report 21665936 (Version 3)
Quarter: 2023Q1

REPORT INFORMATION
  Report Type: Report from Study
  Country: US (occurrence: US)
  Receive Date: 20221201
  Receipt Date: 20230101
  Transmission Date: 20230418
  Serious: Yes (Other)
  Sender: FDA-Public Use
  Company Number: US-ABBVIE-22K-163-4493464-00

PATIENT
  Sex: Female

DRUGS (13)
  1. VENCLEXTA [Suspect]
     Active Substance: VENETOCLAX
     Indication: Chronic lymphocytic leukaemia
     Dosage: 20MG(2X10MG TABS) BY MOUTH EVERY DAY ON WEEK 1
     Route: 048
  2. VENCLEXTA [Suspect]
     Active Substance: VENETOCLAX
     Indication: Chronic lymphocytic leukaemia
     Dosage: 50MG(1X50MG TAB) DAILY BY MOUTH WEEK 2
     Route: 048
  3. VENCLEXTA [Suspect]
     Active Substance: VENETOCLAX
     Indication: Chronic lymphocytic leukaemia
     Dosage: 100MG(1X100MG TAB) BY MOUTH DAILY WEEK 3
     Route: 048
  4. VENCLEXTA [Suspect]
     Active Substance: VENETOCLAX
     Indication: Chronic lymphocytic leukaemia
     Dosage: 200MG(2X100MG TABS) DAILY WEEK 4
     Route: 048
  5. VENCLEXTA [Suspect]
     Active Substance: VENETOCLAX
     Indication: Chronic lymphocytic leukaemia
     Dosage: TAKE 4 TABLET BY MOUTH ONCE DAILY WITH A MEAL AND WATER AT THE SAME TIME EACH DAY
     Route: 048
  6. VENCLEXTA [Suspect]
     Active Substance: VENETOCLAX
     Indication: Chronic lymphocytic leukaemia
     Dosage: 50 MG THEN, 50MG(1X50MG TAB) DAILY BY MOUTH WEEK 2.
     Route: 048
  7. VENCLEXTA [Suspect]
     Active Substance: VENETOCLAX
     Indication: Chronic lymphocytic leukaemia
     Route: 048
  8. VENCLEXTA [Suspect]
     Active Substance: VENETOCLAX
     Indication: Chronic lymphocytic leukaemia
     Route: 048
  9. VENCLEXTA [Suspect]
     Active Substance: VENETOCLAX
     Indication: Chronic lymphocytic leukaemia
     Dosage: 100 MG TAKE 4 TABLET(S) BY MOUTH ONCE DAILY WITH A MEAL AND WATER AT THE SAME TIME EACH DAY
     Route: 048
  10. VENCLEXTA [Suspect]
     Active Substance: VENETOCLAX
     Indication: Chronic lymphocytic leukaemia
     Dosage: 20MG(2X10MG TABS) BY MOUTH EVERY DAY ON WEEK 1
     Route: 048
  11. VENCLEXTA [Suspect]
     Active Substance: VENETOCLAX
     Indication: Chronic lymphocytic leukaemia
     Dosage: STARTING PACK; TAKE 20MG(2X10MG TABS) BY MOUTH EVERY DAY ON WEEK 1.
     Route: 048
  12. VENCLEXTA [Suspect]
     Active Substance: VENETOCLAX
     Indication: Chronic lymphocytic leukaemia
     Dosage: 200 MG THEN, 200MG(2X100MG TABS) DAILY WEEK 4.
     Route: 048
  13. VENCLEXTA [Suspect]
     Active Substance: VENETOCLAX
     Indication: Chronic lymphocytic leukaemia
     Route: 048

REACTIONS (8)
  - Lymphoma [Unknown]
  - COVID-19 [Unknown]
  - Swelling [Unknown]
  - Hypophagia [Unknown]
  - Feeling cold [Unknown]
  - Bladder disorder [Unknown]
  - Pain [Unknown]
  - Feeling abnormal [Unknown]
